FAERS Safety Report 18011820 (Version 1)
Quarter: 2020Q3

REPORT INFORMATION
  Report Type: Report from Study
  Country: US (occurrence: US)
  Receive Date: 20200713
  Receipt Date: 20200713
  Transmission Date: 20201103
  Serious: Yes (Hospitalization, Other)
  Sender: FDA-Public Use
  Company Number: US-AMGEN-USASL2020109573

PATIENT
  Age: 68 Year
  Sex: Male

DRUGS (1)
  1. REPATHA [Suspect]
     Active Substance: EVOLOCUMAB
     Indication: HYPERCHOLESTEROLAEMIA
     Dosage: 140 MILLIGRAM, Q2WK
     Route: 058
     Dates: start: 20200702

REACTIONS (4)
  - Hyperhidrosis [Not Recovered/Not Resolved]
  - Diabetes mellitus [Unknown]
  - Asthenia [Not Recovered/Not Resolved]
  - Dyspnoea [Not Recovered/Not Resolved]

NARRATIVE: CASE EVENT DATE: 20200703
